FAERS Safety Report 21333091 (Version 1)
Quarter: 2022Q3

REPORT INFORMATION
  Report Type: Spontaneous
  Country: CN (occurrence: CN)
  Receive Date: 20220914
  Receipt Date: 20220914
  Transmission Date: 20221027
  Serious: Yes (Death, Hospitalization, Other)
  Sender: FDA-Public Use
  Company Number: CN-GLAXOSMITHKLINE-CN2022GSK132135

PATIENT

DRUGS (2)
  1. ZEJULA [Suspect]
     Active Substance: NIRAPARIB
     Indication: Ovarian cancer
     Dosage: 200 MG, QD
     Route: 048
     Dates: start: 20220804, end: 20220824
  2. CATEQUENTINIB [Suspect]
     Active Substance: CATEQUENTINIB
     Indication: Ovarian cancer
     Dosage: 8 MG, QD
     Route: 048
     Dates: start: 20220804, end: 20220824

REACTIONS (4)
  - Death [Fatal]
  - Platelet count decreased [Not Recovered/Not Resolved]
  - Ecchymosis [Unknown]
  - Chills [Unknown]

NARRATIVE: CASE EVENT DATE: 20220824
